FAERS Safety Report 5992011-X (Version None)
Quarter: 2008Q4

REPORT INFORMATION
  Report Type: 
  Country: None (occurrence: None)
  Receive Date: 20081211
  Receipt Date: 20081204
  Transmission Date: 20090506
  Serious: Yes (Hospitalization, Other)
  Sender: FDA-Public Use
  Company Number: US-ROXANE LABORATORIES, INC.-2008-RO-00341RO

PATIENT
  Age: 58 Year
  Sex: Female
  Weight: 57 kg

DRUGS (10)
  1. CYCLOPHOSPHAMIDE [Suspect]
     Indication: CHEMOTHERAPY
  2. CYCLOPHOSPHAMIDE [Suspect]
  3. PREDNISONE TAB [Suspect]
     Indication: CHEMOTHERAPY
  4. ONCOVIN [Suspect]
     Indication: CHEMOTHERAPY
  5. ADRIAMYCIN PFS [Suspect]
     Indication: CHEMOTHERAPY
  6. ETOPOSIDE [Suspect]
     Indication: CHEMOTHERAPY
     Dosage: 930MG
     Route: 042
  7. CARMUSTINE [Suspect]
     Indication: CHEMOTHERAPY
     Dosage: 225MG
     Route: 042
  8. MESNA [Suspect]
     Indication: CHEMOTHERAPY
     Dosage: 1.377G
     Route: 042
  9. FUROSEMIDE [Concomitant]
     Route: 042
  10. OXYGEN [Concomitant]

REACTIONS (2)
  - CARDIAC FAILURE CONGESTIVE [None]
  - EJECTION FRACTION DECREASED [None]
